FAERS Safety Report 8122416-2 (Version None)
Quarter: 2012Q1

REPORT INFORMATION
  Report Type: 
  Country: None (occurrence: None)
  Receive Date: 20120208
  Receipt Date: 20120202
  Transmission Date: 20120608
  Serious: Yes (Death)
  Sender: FDA-Public Use
  Company Number: JP-GLAXOSMITHKLINE-B0779387A

PATIENT
  Age: 22 Year
  Sex: Female

DRUGS (15)
  1. SILECE [Concomitant]
     Dosage: 1MG PER DAY
     Route: 048
     Dates: end: 20110207
  2. PAXIL [Suspect]
     Dosage: 25MG PER DAY
     Route: 048
     Dates: start: 20110526, end: 20111224
  3. FLUVOXAMINE MALEATE [Concomitant]
     Indication: SOCIAL PHOBIA
     Dosage: 75MG PER DAY
     Route: 048
     Dates: start: 20101228, end: 20110110
  4. FLUVOXAMINE MALEATE [Concomitant]
     Dosage: 25MG PER DAY
     Route: 048
     Dates: start: 20110118, end: 20110124
  5. PAXIL [Suspect]
     Indication: SOCIAL PHOBIA
     Dosage: 10MG PER DAY
     Route: 048
     Dates: start: 20101228, end: 20110110
  6. DEPAKENE [Concomitant]
     Dosage: 300MG PER DAY
     Route: 048
     Dates: end: 20110131
  7. DEPAKENE [Concomitant]
     Dosage: 200MG PER DAY
     Route: 048
     Dates: start: 20110201, end: 20110207
  8. LUVOX [Suspect]
     Indication: SOCIAL PHOBIA
     Dosage: 100MG PER DAY
     Route: 048
  9. PAXIL [Suspect]
     Dosage: 20MG PER DAY
     Route: 048
     Dates: start: 20110111, end: 20110131
  10. FLUVOXAMINE MALEATE [Concomitant]
     Dosage: 50MG PER DAY
     Route: 048
     Dates: start: 20110111, end: 20110117
  11. MEILAX [Concomitant]
     Dosage: 1MG PER DAY
     Route: 048
     Dates: start: 20110208
  12. DESYREL [Concomitant]
     Dosage: 250MG PER DAY
     Route: 048
     Dates: end: 20110131
  13. DESYREL [Concomitant]
     Dosage: 50MG PER DAY
     Route: 048
     Dates: start: 20110201
  14. PAXIL [Suspect]
     Dosage: 30MG PER DAY
     Route: 048
     Dates: start: 20110201, end: 20110525
  15. DOGMATYL [Suspect]
     Indication: PRODUCT USED FOR UNKNOWN INDICATION
     Dosage: 100MG PER DAY
     Route: 048
     Dates: end: 20110404

REACTIONS (1)
  - COMPLETED SUICIDE [None]
